FAERS Safety Report 8230840-2 (Version None)
Quarter: 2012Q1

REPORT INFORMATION
  Report Type: 
  Country: None (occurrence: None)
  Receive Date: 20120323
  Receipt Date: 20120316
  Transmission Date: 20120608
  Serious: Yes (Hospitalization, Other)
  Sender: FDA-Public Use
  Company Number: US-AMGEN-USASP2011038991

PATIENT
  Age: 54 Year
  Sex: Female

DRUGS (6)
  1. WATER [Concomitant]
     Dosage: UNK
  2. ENBREL [Suspect]
     Indication: RHEUMATOID ARTHRITIS
     Dosage: 50 MG, QWK
     Dates: start: 20030901, end: 20120307
  3. ANTIHYPERTENSIVES [Concomitant]
     Indication: BLOOD PRESSURE
     Dosage: UNK
  4. METHYLPREDNISOLONE [Concomitant]
     Dosage: UNK
  5. FELDENE [Concomitant]
     Dosage: UNK
  6. ENBREL [Suspect]
     Dosage: 50 MG, QWK

REACTIONS (29)
  - FALL [None]
  - CARTILAGE ATROPHY [None]
  - SWELLING [None]
  - ONYCHOMADESIS [None]
  - HYPOTENSION [None]
  - SKIN EXFOLIATION [None]
  - SPINAL COLUMN STENOSIS [None]
  - HYPOTHYROIDISM [None]
  - MENTAL DISORDER [None]
  - TREATMENT NONCOMPLIANCE [None]
  - LIMB INJURY [None]
  - SKIN ULCER [None]
  - MALAISE [None]
  - SYNCOPE [None]
  - ARTHRALGIA [None]
  - SYNOVIAL CYST [None]
  - OSTEOPOROSIS [None]
  - BLISTER [None]
  - WEIGHT DECREASED [None]
  - OPEN WOUND [None]
  - ARTHROPATHY [None]
  - RHEUMATOID NODULE [None]
  - SKIN DISCOLOURATION [None]
  - SKIN DISORDER [None]
  - OEDEMA PERIPHERAL [None]
  - TENDON INJURY [None]
  - RHEUMATOID FACTOR INCREASED [None]
  - PAIN [None]
  - BUNION [None]
